FAERS Safety Report 7941861-9 (Version None)
Quarter: 2011Q4

REPORT INFORMATION
  Report Type: 
  Country: None (occurrence: None)
  Receive Date: 20111122
  Receipt Date: 20111122
  Transmission Date: 20120403
  Serious: Yes (Other)
  Sender: FDA-Public Use
  Company Number: None

PATIENT
  Age: 50 Year
  Sex: Male

DRUGS (5)
  1. REVLIMID [Suspect]
     Indication: MULTIPLE MYELOMA
     Dosage: 15 MG DAILY X21D/28D ORALLY
     Route: 048
     Dates: start: 20110301
  2. ATENOLOL [Concomitant]
  3. FLUTICASONE PROPIONATE [Concomitant]
  4. ASPIRIN [Concomitant]
  5. DULOXETINE HYDROCHLORIDE [Concomitant]

REACTIONS (1)
  - BLOOD COUNT ABNORMAL [None]
